FAERS Safety Report 6201440-0 (Version None)
Quarter: 2009Q2

REPORT INFORMATION
  Report Type: 
  Country: None (occurrence: None)
  Receive Date: 20090526
  Receipt Date: 20090514
  Transmission Date: 20091009
  Serious: Yes (Hospitalization)
  Sender: FDA-Public Use
  Company Number: JP-ROCHE-587650

PATIENT
  Sex: Male
  Weight: 40.4 kg

DRUGS (17)
  1. CAPECITABINE [Suspect]
     Indication: GASTRIC CANCER
     Dosage: FREQUENCY: BID D1-D14 Q3W, DOSE AS PER PROTOCOL, 2000 MG/M2 DAILY. DOSAGE REPORTED AS 3000MG/DAY
     Route: 048
     Dates: start: 20080715, end: 20080719
  2. CAPECITABINE [Suspect]
     Dosage: CYCLE 2 DOSE AS PER PROTOCOL, 2000 MG/M2 DAILY, BID D1-D14 Q3W. DOSAGE REPORTED AS 2300MG/DAY
     Route: 048
     Dates: start: 20080804
  3. CAPECITABINE [Suspect]
     Dosage: CYCLE 2 DOSE AS PER PROTOCOL, 2000 MG/M2 DAILY, BID D1-D14 Q3W. DOSAGE REPORTED AS 2300MG/DAY
     Route: 048
     Dates: start: 20080826
  4. CAPECITABINE [Suspect]
     Dosage: CYCLE 4 DOSE NOT SPECIFIED
     Route: 048
     Dates: start: 20080925
  5. CAPECITABINE [Suspect]
     Dosage: CYCLE 5 DOSE NOT SPECIFIED
     Route: 048
     Dates: start: 20081016
  6. CAPECITABINE [Suspect]
     Dosage: CYCLE 6 PATIENT WITHDRAWN FROM STUDY
     Route: 048
     Dates: start: 20081106, end: 20090507
  7. BLINDED BEVACIZUMAB [Suspect]
     Indication: GASTRIC CANCER
     Dosage: FORM: INFUSION, FREQUENCY: D1Q3W.
     Route: 042
     Dates: start: 20080715
  8. BLINDED BEVACIZUMAB [Suspect]
     Dosage: CYCLE 2
     Route: 042
     Dates: start: 20080804
  9. BLINDED BEVACIZUMAB [Suspect]
     Dosage: CYCLE 3
     Route: 042
     Dates: start: 20080826
  10. BLINDED BEVACIZUMAB [Suspect]
     Dosage: CYCLE 4 DOSE NOT SPECIFIED
     Route: 042
     Dates: start: 20080925
  11. BLINDED BEVACIZUMAB [Suspect]
     Dosage: CYCLE 5 DOSE NOT SPECIFIED
     Route: 042
     Dates: start: 20081016
  12. BLINDED BEVACIZUMAB [Suspect]
     Dosage: CYCLE 6 DOSE DECREASED PATIENT WITHDRAWN FROM STUDY ON 7 MAY 2009
     Route: 042
     Dates: start: 20081106, end: 20090507
  13. CISPLATIN [Suspect]
     Indication: GASTRIC CANCER
     Dosage: FORM: INFUSION, FREQUENCY: D1Q3W, DOSE AS PER PROTOCOL, 80 MG/M2. DOSE: 113.6 MG/BODY
     Route: 042
     Dates: start: 20080715, end: 20080804
  14. CISPLATIN [Suspect]
     Dosage: FORM: INFUSION, FREQUENCY: D1Q3W, DOSE AS PER PROTOCOL, 80 MG/M2. DRUG DISCONTINUED
     Route: 042
  15. CISPLATIN [Suspect]
     Dosage: CYCLE 4 DOSE NOT SPECIFIED
     Route: 042
     Dates: start: 20080925
  16. CISPLATIN [Suspect]
     Dosage: CYCLE 5 DOSE NOT SPECIFIED
     Route: 042
     Dates: start: 20081015
  17. CISPLATIN [Suspect]
     Dosage: CYCLE 6 DOSE NOT SPECIFIED
     Route: 042
     Dates: start: 20081106, end: 20090507

REACTIONS (1)
  - PNEUMONIA ASPIRATION [None]
